FAERS Safety Report 21813105 (Version 1)
Quarter: 2023Q1

REPORT INFORMATION
  Report Type: Spontaneous
  Country: US (occurrence: US)
  Receive Date: 20230103
  Receipt Date: 20230103
  Transmission Date: 20230418
  Serious: No
  Sender: FDA-Public Use
  Company Number: US-SA-SAC20221230000935

PATIENT
  Age: 68 Year
  Sex: Female

DRUGS (1)
  1. DUPIXENT [Suspect]
     Active Substance: DUPILUMAB
     Indication: Dermatitis atopic
     Dosage: 300MG ECERY 14 DAYS
     Route: 058
     Dates: start: 20210607

REACTIONS (2)
  - Dry eye [Unknown]
  - Oral herpes [Unknown]

NARRATIVE: CASE EVENT DATE: 20221229
